FAERS Safety Report 12204563 (Version 3)
Quarter: 2016Q2

REPORT INFORMATION
  Report Type: Spontaneous
  Country: US (occurrence: US)
  Receive Date: 20160323
  Receipt Date: 20160426
  Transmission Date: 20160815
  Serious: Yes (Hospitalization, Other)
  Sender: FDA-Public Use
  Company Number: US-PFIZER INC-2016167385

PATIENT
  Age: 51 Year
  Sex: Female
  Weight: 122 kg

DRUGS (3)
  1. LIPITOR [Suspect]
     Active Substance: ATORVASTATIN CALCIUM
     Indication: BLOOD CHOLESTEROL ABNORMAL
     Dosage: UNK
  2. CRESTOR [Concomitant]
     Active Substance: ROSUVASTATIN CALCIUM
     Dosage: UNK
  3. LEVOTHYROXINE. [Concomitant]
     Active Substance: LEVOTHYROXINE
     Indication: THYROID DISORDER
     Dosage: 75 UG, UNK

REACTIONS (15)
  - Hypertension [Unknown]
  - Bronchitis [Unknown]
  - Type 2 diabetes mellitus [Unknown]
  - Liver disorder [Unknown]
  - Bowel movement irregularity [Unknown]
  - Asthma [Unknown]
  - Migraine [Unknown]
  - Skin burning sensation [Unknown]
  - Myocardial infarction [Unknown]
  - Haematochezia [Unknown]
  - Generalised tonic-clonic seizure [Unknown]
  - Gastrointestinal disorder [Unknown]
  - Arthropathy [Unknown]
  - Headache [Unknown]
  - Cystitis [Not Recovered/Not Resolved]

NARRATIVE: CASE EVENT DATE: 2012
